FAERS Safety Report 10192746 (Version 1)
Quarter: 2014Q2

REPORT INFORMATION
  Report Type: Spontaneous
  Country: SG (occurrence: SG)
  Receive Date: 20140523
  Receipt Date: 20140523
  Transmission Date: 20141212
  Serious: Yes (Other)
  Sender: FDA-Public Use
  Company Number: SG-BAYER-2014-077036

PATIENT
  Age: 56 Year
  Sex: Male

DRUGS (1)
  1. ACETYLSALICYLIC ACID (} 100 MG) [Suspect]
     Dosage: 100 MG, UNK
     Route: 048
     Dates: start: 20140418, end: 20140419

REACTIONS (1)
  - Eye swelling [Recovered/Resolved]
